FAERS Safety Report 11881848 (Version 1)
Quarter: 2015Q4

REPORT INFORMATION
  Report Type: Report from Study
  Country: CA (occurrence: CA)
  Receive Date: 20151231
  Receipt Date: 20151231
  Transmission Date: 20160305
  Serious: Yes (Other)
  Sender: FDA-Public Use
  Company Number: CA-JNJFOC-20151220630

PATIENT
  Age: 15 Year
  Sex: Male
  Weight: 48 kg

DRUGS (24)
  1. REMICADE [Suspect]
     Active Substance: INFLIXIMAB
     Indication: CROHN^S DISEASE
     Route: 042
     Dates: start: 20130612
  2. CELEBREX [Concomitant]
     Active Substance: CELECOXIB
     Indication: PAIN
     Dosage: APR 18-25
     Route: 065
     Dates: start: 20140418, end: 20140425
  3. CALCIUM CARBONATE. [Concomitant]
     Active Substance: CALCIUM CARBONATE
     Route: 065
  4. OMEGA-3 FATTY ACIDS [Concomitant]
     Active Substance: OMEGA-3 FATTY ACIDS
     Route: 065
  5. REMICADE [Suspect]
     Active Substance: INFLIXIMAB
     Indication: CROHN^S DISEASE
     Route: 042
  6. TETRACYCLIN [Concomitant]
     Indication: BIOPSY BONE
     Dosage: 8*IN TOTAL
     Route: 065
  7. DERMA SMOOTHE [Concomitant]
     Indication: PSORIASIS
     Dosage: FS
     Route: 061
     Dates: start: 20140411
  8. CELEBREX [Concomitant]
     Active Substance: CELECOXIB
     Indication: PAIN
     Dosage: AUG 8 - SEP 6
     Route: 065
     Dates: start: 20140808, end: 20140906
  9. DOVOBET [Concomitant]
     Active Substance: BETAMETHASONE\CALCIPOTRIENE
     Indication: PSORIASIS
     Route: 061
     Dates: start: 201404, end: 201407
  10. PAMIDRONATE [Concomitant]
     Active Substance: PAMIDRONATE DISODIUM
     Indication: BONE DISORDER
     Dosage: 7 INFUSION. DUE TO FINISH JUN-2016
     Route: 042
     Dates: start: 20151203
  11. LANSOPRAZOLE. [Concomitant]
     Active Substance: LANSOPRAZOLE
     Indication: ABDOMINAL PAIN UPPER
     Dosage: 14 MONTHS
     Route: 065
     Dates: start: 20130517, end: 20140717
  12. CELEBREX [Concomitant]
     Active Substance: CELECOXIB
     Indication: PAIN
     Dosage: MAY 2 - AUG 7
     Route: 065
     Dates: start: 20140502, end: 20140807
  13. FOLIC ACID. [Concomitant]
     Active Substance: FOLIC ACID
     Route: 065
  14. EICOSAPENTAENOIC ACID [Concomitant]
     Route: 065
  15. REMICADE [Suspect]
     Active Substance: INFLIXIMAB
     Indication: CROHN^S DISEASE
     Route: 042
     Dates: start: 20151029
  16. CIPROFLOXACIN. [Concomitant]
     Active Substance: CIPROFLOXACIN
     Indication: CROHN^S DISEASE
     Dosage: 28 HALF MONTHS
     Route: 065
     Dates: start: 20130401, end: 20150815
  17. CELEBREX [Concomitant]
     Active Substance: CELECOXIB
     Indication: PAIN
     Dosage: APR 8-17
     Route: 065
     Dates: start: 20140408, end: 20140417
  18. DOVOBET [Concomitant]
     Active Substance: BETAMETHASONE\CALCIPOTRIENE
     Indication: PSORIASIS
     Route: 061
     Dates: start: 201404, end: 201407
  19. DHA [Concomitant]
     Active Substance: DIETARY SUPPLEMENT
     Route: 065
  20. REMICADE [Suspect]
     Active Substance: INFLIXIMAB
     Indication: CROHN^S DISEASE
     Route: 042
  21. METHOTREXATE [Concomitant]
     Active Substance: METHOTREXATE
     Indication: CROHN^S DISEASE
     Dosage: CURRENTLY ON FRIDAYS (WAS ON THURSDAYS UNTIL 27-NOV-2015)
     Route: 065
     Dates: start: 20130627
  22. CALCIUM CITRATE [Concomitant]
     Active Substance: CALCIUM CITRATE
     Route: 065
  23. VITAMIN D [Concomitant]
     Active Substance: CHOLECALCIFEROL
     Route: 065
  24. FISH OIL [Concomitant]
     Active Substance: FISH OIL
     Route: 065

REACTIONS (9)
  - Psoriasis [Unknown]
  - SAPHO syndrome [Unknown]
  - Juvenile idiopathic arthritis [Unknown]
  - Acne cystic [Recovering/Resolving]
  - Eczema [Unknown]
  - Stress fracture [Unknown]
  - Bone density decreased [Unknown]
  - Leukocyte antigen B-27 positive [Unknown]
  - Stress fracture [Unknown]

NARRATIVE: CASE EVENT DATE: 201404
